FAERS Safety Report 5399487-X (Version None)
Quarter: 2007Q3

REPORT INFORMATION
  Report Type: 
  Country: None (occurrence: None)
  Receive Date: 20070727
  Receipt Date: 20070712
  Transmission Date: 20080115
  Serious: Yes (Hospitalization)
  Sender: FDA-Public Use
  Company Number: JP-PFIZER INC-2007059897

PATIENT
  Sex: Male

DRUGS (14)
  1. MIGLITOL TABLET [Suspect]
     Indication: DIABETES MELLITUS
     Dosage: DAILY DOSE:225MG
     Route: 048
  2. ACTOS [Suspect]
     Indication: DIABETES MELLITUS
     Dosage: DAILY DOSE:30MG
     Route: 048
  3. DAONIL [Suspect]
     Indication: DIABETES MELLITUS
     Dosage: DAILY DOSE:10MG
     Route: 048
  4. MELBIN [Suspect]
     Indication: DIABETES MELLITUS
     Dosage: DAILY DOSE:500MG
     Route: 048
  5. MADOPAR [Concomitant]
     Indication: PARKINSON'S DISEASE
     Dosage: DAILY DOSE:450MG
  6. PERMAX [Concomitant]
     Indication: PARKINSON'S DISEASE
     Dosage: DAILY DOSE:750MCG
     Route: 048
  7. SYMMETREL [Concomitant]
     Indication: PARKINSON'S DISEASE
     Dosage: DAILY DOSE:150MG
     Route: 048
  8. PRAMIPEXOLE DIHYDROCHLORIDE [Concomitant]
     Indication: PARKINSON'S DISEASE
     Dosage: DAILY DOSE:1.5MG
     Route: 048
  9. ASPIRIN [Concomitant]
     Indication: CEREBROVASCULAR ACCIDENT
     Dosage: DAILY DOSE:100MG
     Route: 048
  10. MUCOSTA [Concomitant]
     Indication: NAUSEA
     Dosage: DAILY DOSE:300MG
     Route: 048
  11. PURSENNID [Concomitant]
     Indication: CONSTIPATION
     Dosage: DAILY DOSE:24MG
     Route: 048
  12. ALOSENN [Concomitant]
     Indication: CONSTIPATION
     Dosage: DAILY DOSE:2GRAM
     Route: 048
  13. WYPAX [Concomitant]
     Indication: NIGHTMARE
     Dosage: DAILY DOSE:.5MG
     Route: 048
  14. ALL OTHER THERAPEUTIC PRODUCTS [Concomitant]
     Route: 048
     Dates: start: 20070606, end: 20070703

REACTIONS (1)
  - ALTERED STATE OF CONSCIOUSNESS [None]
